FAERS Safety Report 8094152-2 (Version None)
Quarter: 2012Q1

REPORT INFORMATION
  Report Type: 
  Country: None (occurrence: None)
  Receive Date: 20120130
  Receipt Date: 20120130
  Transmission Date: 20120608
  Serious: No
  Sender: FDA-Public Use
  Company Number: None

PATIENT
  Sex: Male
  Weight: 95.254 kg

DRUGS (1)
  1. EXCEDRIN (MIGRAINE) [Suspect]
     Indication: MIGRAINE
     Dosage: 2

REACTIONS (7)
  - MIDDLE INSOMNIA [None]
  - ABNORMAL SLEEP-RELATED EVENT [None]
  - TONGUE BITING [None]
  - POOR QUALITY DRUG ADMINISTERED [None]
  - LOSS OF CONSCIOUSNESS [None]
  - SWOLLEN TONGUE [None]
  - BACK PAIN [None]
